FAERS Safety Report 7485732-3 (Version None)
Quarter: 2011Q2

REPORT INFORMATION
  Report Type: 
  Country: None (occurrence: None)
  Receive Date: 20110517
  Receipt Date: 20110511
  Transmission Date: 20111010
  Serious: Yes (Hospitalization, Disabling)
  Sender: FDA-Public Use
  Company Number: US-MERCK-1012USA02293

PATIENT
  Age: 64 Year
  Sex: Female

DRUGS (7)
  1. NORVASC [Concomitant]
     Indication: HYPERTENSION
     Route: 065
  2. FOSAMAX [Suspect]
     Indication: OSTEOPENIA
     Route: 048
     Dates: start: 20021203, end: 20090101
  3. FOSAMAX [Suspect]
     Indication: OSTEOPOROSIS
     Route: 048
     Dates: start: 20021203, end: 20090101
  4. SIMVASTATIN [Concomitant]
     Indication: BLOOD CHOLESTEROL INCREASED
     Route: 065
  5. LISINOPRIL [Concomitant]
     Indication: HYPERTENSION
     Route: 065
  6. ASPIRIN [Concomitant]
     Route: 065
  7. DIOVAN [Concomitant]
     Route: 065

REACTIONS (30)
  - ACUTE SINUSITIS [None]
  - ENTHESOPATHY [None]
  - ANAEMIA OF CHRONIC DISEASE [None]
  - CARPAL TUNNEL SYNDROME [None]
  - HYPOTENSION [None]
  - CERVICAL DYSPLASIA [None]
  - LOW TURNOVER OSTEOPATHY [None]
  - FEMUR FRACTURE [None]
  - DIZZINESS [None]
  - PAIN IN EXTREMITY [None]
  - VERTIGO [None]
  - VAGINAL INFECTION [None]
  - CARDIOMYOPATHY [None]
  - GASTROOESOPHAGEAL REFLUX DISEASE [None]
  - IRRITABLE BOWEL SYNDROME [None]
  - RADICULITIS LUMBOSACRAL [None]
  - POLYNEUROPATHY [None]
  - GASTROINTESTINAL HAEMORRHAGE [None]
  - OSTEOPOROSIS [None]
  - OSTEOARTHRITIS [None]
  - BURSITIS [None]
  - BONE DISORDER [None]
  - CAROTID ARTERY OCCLUSION [None]
  - PALPITATIONS [None]
  - NEURITIS [None]
  - BACK PAIN [None]
  - EYE INFECTION [None]
  - CAROTID ARTERY STENOSIS [None]
  - FALL [None]
  - STRESS FRACTURE [None]
